FAERS Safety Report 4402842-5 (Version None)
Quarter: 2004Q3

REPORT INFORMATION
  Report Type: 
  Country: None (occurrence: None)
  Receive Date: 20040719
  Receipt Date: 20040707
  Transmission Date: 20050211
  Serious: Yes (Other)
  Sender: FDA-Public Use
  Company Number: HQWYE539421JUN04

PATIENT
  Age: 48 Year
  Sex: Male
  Weight: 108.96 kg

DRUGS (4)
  1. EFFEXOR XR [Suspect]
     Indication: ANXIETY
     Dosage: SEE IMAGE
     Route: 048
     Dates: start: 20020601, end: 20030101
  2. EFFEXOR XR [Suspect]
     Indication: STRESS SYMPTOMS
     Dosage: SEE IMAGE
     Route: 048
     Dates: start: 20020601, end: 20030101
  3. EFFEXOR XR [Suspect]
     Indication: ANXIETY
     Dosage: SEE IMAGE
     Route: 048
     Dates: start: 20030101, end: 20030201
  4. EFFEXOR XR [Suspect]
     Indication: STRESS SYMPTOMS
     Dosage: SEE IMAGE
     Route: 048
     Dates: start: 20030101, end: 20030201

REACTIONS (16)
  - ANXIETY [None]
  - ASTHENIA [None]
  - BRUXISM [None]
  - CHEST PAIN [None]
  - CONFUSIONAL STATE [None]
  - DISTURBANCE IN ATTENTION [None]
  - DRUG DEPENDENCE [None]
  - DRUG WITHDRAWAL SYNDROME [None]
  - DYSPHEMIA [None]
  - HEADACHE [None]
  - HEART RATE INCREASED [None]
  - INSOMNIA [None]
  - RESTLESSNESS [None]
  - SPEECH DISORDER [None]
  - THINKING ABNORMAL [None]
  - VISION BLURRED [None]
